FAERS Safety Report 10803078 (Version 2)
Quarter: 2022Q3

REPORT INFORMATION
  Report Type: Spontaneous
  Country: FR (occurrence: FR)
  Receive Date: 20150217
  Receipt Date: 20220930
  Transmission Date: 20221027
  Serious: Yes (Death, Hospitalization)
  Sender: FDA-Public Use
  Company Number: PHHY2015FR016923

PATIENT
  Age: 77 Year
  Sex: Female

DRUGS (8)
  1. ACETAMINOPHEN [Suspect]
     Active Substance: ACETAMINOPHEN
     Indication: Back pain
     Dosage: 6.6 G, QD
     Route: 065
  2. FLUINDIONE [Concomitant]
     Active Substance: FLUINDIONE
     Indication: Atrial fibrillation
     Dosage: UNK
     Route: 065
  3. INSULIN NOS [Concomitant]
     Active Substance: INSULIN NOS
     Indication: Diabetes mellitus
     Dosage: UNK
     Route: 065
  4. RILMENIDINE [Concomitant]
     Active Substance: RILMENIDINE
     Indication: Hypertension
     Dosage: UNK
     Route: 065
  5. LOSARTAN [Concomitant]
     Active Substance: LOSARTAN
     Indication: Hypertension
     Dosage: UNK
     Route: 065
  6. HYDROCHLOROTHIAZIDE [Concomitant]
     Active Substance: HYDROCHLOROTHIAZIDE
     Indication: Hypertension
     Dosage: UNK
     Route: 065
  7. DICLOFENAC SODIUM\MISOPROSTOL [Concomitant]
     Active Substance: DICLOFENAC SODIUM\MISOPROSTOL
     Indication: Back pain
     Dosage: UNK
     Route: 065
  8. TRAMADOL HYDROCHLORIDE [Concomitant]
     Active Substance: TRAMADOL HYDROCHLORIDE
     Indication: Back pain
     Dosage: UNK
     Route: 065

REACTIONS (11)
  - Hepatitis fulminant [Fatal]
  - Jaundice [Fatal]
  - Somnolence [Fatal]
  - Gastrointestinal haemorrhage [Fatal]
  - Pyrexia [Fatal]
  - Hepatic encephalopathy [Fatal]
  - Hypovolaemic shock [Fatal]
  - Acute hepatic failure [Fatal]
  - Hepatitis E [Fatal]
  - Acute kidney injury [Not Recovered/Not Resolved]
  - Overdose [Unknown]
